FAERS Safety Report 11879582 (Version 1)
Quarter: 2015Q4

REPORT INFORMATION
  Report Type: Spontaneous
  Country: US (occurrence: US)
  Receive Date: 20151230
  Receipt Date: 20151230
  Transmission Date: 20160305
  Serious: No
  Sender: FDA-Public Use
  Company Number: US-PFIZER INC-2015471368

PATIENT
  Age: 60 Year
  Sex: Female

DRUGS (5)
  1. NAPROSYN [Suspect]
     Active Substance: NAPROXEN
     Dosage: UNK
  2. MIRTAZAPINE. [Suspect]
     Active Substance: MIRTAZAPINE
     Dosage: UNK
  3. LISINOPRIL. [Suspect]
     Active Substance: LISINOPRIL
     Dosage: UNK
  4. NAPROXEN. [Suspect]
     Active Substance: NAPROXEN
     Dosage: UNK
  5. PREMARIN [Suspect]
     Active Substance: ESTROGENS, CONJUGATED
     Dosage: UNK

REACTIONS (1)
  - Drug hypersensitivity [Unknown]
